FAERS Safety Report 6482854 (Version 24)
Quarter: 2013Q4

REPORT INFORMATION
  Report Type: Spontaneous
  Country: US (occurrence: US)
  Receive Date: 20071207
  Receipt Date: 20131028
  Transmission Date: 20140711
  Serious: Yes (Hospitalization, Other)
  Sender: FDA-Public Use
  Company Number: PHEH2007US15445

PATIENT
  Age: 62 Year
  Sex: Female
  Weight: 68.03 kg

DRUGS (82)
  1. AREDIA [Suspect]
     Route: 042
  2. ZOMETA [Suspect]
     Route: 042
  3. REVLIMID [Concomitant]
     Dates: end: 200707
  4. ANTINEOPLASTIC AGENTS [Concomitant]
  5. RADIATION THERAPY [Concomitant]
  6. POTASSIUM [Concomitant]
  7. PRAVACHOL [Concomitant]
  8. OXYCONTIN [Concomitant]
  9. ZOLOFT [Concomitant]
     Dosage: 50 MG, BID
  10. ZOLOFT [Concomitant]
     Dosage: 100 MG, QD
  11. TEMAZEPAM [Concomitant]
  12. REQUIP [Concomitant]
  13. OMEPRAZOLE [Concomitant]
  14. PROTONIX ^PHARMACIA^ [Concomitant]
  15. LISINOPRIL [Concomitant]
  16. VALTREX [Concomitant]
  17. XANAX [Concomitant]
  18. PERCOCET [Concomitant]
  19. HYDROCHLOROTHIAZIDE [Concomitant]
  20. DEXAMETHASONE [Concomitant]
  21. ARANESP [Concomitant]
  22. ENDOCET [Concomitant]
  23. PANTOPRAZOLE [Concomitant]
     Dosage: 40 MG, ONCE/SINGLE
  24. PRAVASTATIN [Concomitant]
     Dosage: 80 MG, ONCE/SINGLE
  25. POTASSIUM CHLORIDE [Concomitant]
     Dosage: 10 MG, ONCE/SINGLE
  26. ZETIA [Concomitant]
     Dosage: 10 MG, ONCE/SINGLE
  27. MORPHINE SULFATE [Concomitant]
     Dosage: 60 MG, BID
  28. ASPIRIN ^BAYER^ [Concomitant]
     Dosage: 81 MG, ONCE/SINGLE
  29. OXYCODONE [Concomitant]
     Dosage: 40 MG, BID
  30. LORAZEPAM [Concomitant]
     Dosage: 7 MG, PRN
  31. NITROFURAN [Concomitant]
     Dosage: 100 MG, BID
  32. CYMBALTA [Concomitant]
  33. DESIPRAMINE [Concomitant]
  34. ROXICODONE [Concomitant]
     Dosage: 5 MG, PRN
  35. PHENERGAN VC [Concomitant]
  36. Z-PAK [Concomitant]
  37. GLYBURIDE [Concomitant]
     Dosage: 5 MG, ONCE/SINGLE
  38. K-DUR [Concomitant]
  39. LIPITOR                                 /NET/ [Concomitant]
     Dosage: 40 MG, ONCE/SINGLE
  40. VELCADE [Concomitant]
     Route: 042
  41. STEROIDS NOS [Concomitant]
  42. TEQUIN [Concomitant]
     Dosage: 400 MG, ONCE/SINGLE
  43. DECADRON                                /CAN/ [Concomitant]
  44. ZOCOR ^DIECKMANN^ [Concomitant]
     Dosage: 40 MG, BID
  45. ATENOLOL [Concomitant]
     Dosage: 50 MG, ONCE/SINGLE
  46. PRINZIDE [Concomitant]
  47. RANITIDINE [Concomitant]
     Dosage: 150 MG, ONCE/SINGLE
  48. ZANTAC [Concomitant]
  49. CYTOXAN [Concomitant]
  50. VALIUM [Concomitant]
  51. PROCRIT                            /00909301/ [Concomitant]
  52. PAMIDRONATE DISODIUM [Concomitant]
  53. ATIVAN [Concomitant]
     Dosage: 1 MG, BID
  54. RESTORIL [Concomitant]
  55. ZOLEDRONATE [Concomitant]
  56. ROXICET [Concomitant]
  57. ALENDRONATE SODIUM [Concomitant]
  58. THALIDOMIDE [Concomitant]
  59. GABAPENTIN [Concomitant]
  60. ACYCLOVIR [Concomitant]
     Dosage: 800 MG, ONCE/SINGLE
     Route: 048
  61. NEURONTIN [Concomitant]
     Dosage: 300 MG, TID
     Route: 048
  62. DILAUDID [Concomitant]
     Indication: PAIN
     Dosage: 2 MG, ONCE/SINGLE
  63. DEPO-MEDROL [Concomitant]
  64. QUININE SULFATE [Concomitant]
     Indication: MUSCLE SPASMS
     Dosage: 260 MG, PRN
     Route: 048
  65. ALEVE                              /00256202/ [Concomitant]
  66. PROMETHAZINE [Concomitant]
  67. SERTRALINE [Concomitant]
  68. ROPINIROLE HYDROCHLORIDE [Concomitant]
  69. COMPRO [Concomitant]
  70. CIPROFLOXACIN [Concomitant]
  71. PRAVASTATIN SODIUM [Concomitant]
  72. FUROSEMIDE [Concomitant]
  73. FEXOFENADINE HYDROCHLORIDE [Concomitant]
  74. LEVAQUIN [Concomitant]
  75. CEFUROXIME [Concomitant]
  76. PREDNISONE [Concomitant]
  77. NITROFURANTOIN [Concomitant]
  78. NOVOLIN [Concomitant]
  79. IPRATROPIUM [Concomitant]
  80. LORATADINE [Concomitant]
  81. ENABLEX [Concomitant]
  82. MICROBID [Concomitant]

REACTIONS (65)
  - Plasma cell myeloma [Unknown]
  - Biopsy bone marrow abnormal [Unknown]
  - Lumbar vertebral fracture [Unknown]
  - Anaemia [Unknown]
  - Leukopenia [Unknown]
  - Thrombocytopenia [Unknown]
  - Plasmacytoma [Unknown]
  - Plasmacytosis [Unknown]
  - Bone marrow failure [Unknown]
  - Spinal disorder [Unknown]
  - Neurofibroma [Unknown]
  - Spinal osteoarthritis [Unknown]
  - Splenomegaly [Unknown]
  - Intervertebral disc disorder [Unknown]
  - Spinal column stenosis [Unknown]
  - Radicular pain [Unknown]
  - Pneumonia [Unknown]
  - Cardiac failure congestive [Unknown]
  - Tracheobronchitis [Unknown]
  - Osteonecrosis of jaw [Unknown]
  - Bone disorder [Unknown]
  - Osteomyelitis [Unknown]
  - Injury [Unknown]
  - Pain [Unknown]
  - Anxiety [Unknown]
  - Dental caries [Unknown]
  - Diabetes mellitus [Unknown]
  - Neuropathy peripheral [Unknown]
  - Paraesthesia [Unknown]
  - Dysphonia [Unknown]
  - Facial pain [Unknown]
  - Weight increased [Unknown]
  - Back pain [Unknown]
  - Pain in extremity [Unknown]
  - Groin pain [Unknown]
  - Fall [Unknown]
  - Myalgia [Unknown]
  - Tendon disorder [Unknown]
  - Joint effusion [Unknown]
  - Onychomycosis [Unknown]
  - Nail dystrophy [Unknown]
  - Onychalgia [Unknown]
  - Infection [Unknown]
  - Inflammation [Unknown]
  - Renal failure [Unknown]
  - Patella fracture [Unknown]
  - Oedema peripheral [Unknown]
  - Dizziness [Unknown]
  - Cystitis noninfective [Unknown]
  - Haematuria [Unknown]
  - Pruritus [Unknown]
  - Patellofemoral pain syndrome [Unknown]
  - Sinusitis [Unknown]
  - Cerebral atrophy [Unknown]
  - Cerebral small vessel ischaemic disease [Unknown]
  - Nasal septum deviation [Unknown]
  - Deafness neurosensory [Unknown]
  - Nerve injury [Unknown]
  - Lumbar spinal stenosis [Unknown]
  - Arthralgia [Unknown]
  - Muscle spasms [Unknown]
  - Insomnia [Unknown]
  - Skin hyperpigmentation [Unknown]
  - Tenderness [Unknown]
  - Hyporeflexia [Unknown]
